FAERS Safety Report 6368342-0 (Version None)
Quarter: 2009Q3

REPORT INFORMATION
  Report Type: 
  Country: None (occurrence: None)
  Receive Date: 20090922
  Receipt Date: 20090921
  Transmission Date: 20100115
  Serious: Yes (Other)
  Sender: FDA-Public Use
  Company Number: US-PFIZER INC-2009242938

PATIENT
  Sex: Male
  Weight: 87.089 kg

DRUGS (2)
  1. LIPITOR [Suspect]
     Indication: BLOOD CHOLESTEROL
     Dosage: FREQUENCY: 1X/DAY, EVERYDAY;
     Dates: start: 19900101
  2. CARVEDILOL [Concomitant]

REACTIONS (3)
  - MUSCULAR WEAKNESS [None]
  - MYOCARDIAL INFARCTION [None]
  - PAIN [None]
